FAERS Safety Report 4978331-6 (Version None)
Quarter: 2006Q2

REPORT INFORMATION
  Report Type: 
  Country: None (occurrence: None)
  Receive Date: 20060417
  Receipt Date: 20060331
  Transmission Date: 20061013
  Serious: Yes (Hospitalization, Other)
  Sender: FDA-Public Use
  Company Number: TRP_0743_2006

PATIENT
  Age: 25 Year
  Sex: Female
  Weight: 56.6996 kg

DRUGS (5)
  1. RIBASPHERE [Suspect]
     Indication: HEPATITIS C
     Dosage: 1000 MG QDAY PO
     Route: 048
     Dates: start: 20050906, end: 20060324
  2. PEG-INTRON [Suspect]
     Indication: HEPATITIS C
     Dosage: 80 MCG 2XWK SC
     Route: 058
     Dates: start: 20050906, end: 20060324
  3. CELEXA [Concomitant]
  4. TEMAZEPAM [Concomitant]
  5. VITAMIN E [Concomitant]

REACTIONS (9)
  - CARBON MONOXIDE POISONING [None]
  - DRUG ABUSER [None]
  - EMOTIONAL DISORDER [None]
  - FEELING COLD [None]
  - MANIA [None]
  - MEMORY IMPAIRMENT [None]
  - MENTAL DISORDER [None]
  - TEARFULNESS [None]
  - TREATMENT NONCOMPLIANCE [None]
